FAERS Safety Report 5403347-5 (Version None)
Quarter: 2007Q3

REPORT INFORMATION
  Report Type: 
  Country: None (occurrence: None)
  Receive Date: 20070801
  Receipt Date: 20070726
  Transmission Date: 20080115
  Serious: Yes (Other)
  Sender: FDA-Public Use
  Company Number: US-ALLERGAN-0700244US

PATIENT
  Age: 36 Year
  Sex: Female

DRUGS (3)
  1. BOTOX [Suspect]
     Indication: FACIAL SPASM
     Dosage: 30 UNITS, SINGLE
     Route: 030
     Dates: start: 20060907, end: 20060907
  2. BOTOX [Suspect]
     Indication: TEMPOROMANDIBULAR JOINT SYNDROME
     Dosage: 30 UNITS, SINGLE
     Route: 030
     Dates: start: 20060922, end: 20060922
  3. BOTOX [Suspect]
     Indication: HEADACHE
     Dosage: 30 UNITS, SINGLE
     Route: 030
     Dates: start: 20061006, end: 20061006

REACTIONS (9)
  - DROOLING [None]
  - EYE DISORDER [None]
  - FACIAL PARESIS [None]
  - MUSCLE SPASMS [None]
  - MUSCULAR WEAKNESS [None]
  - NECK PAIN [None]
  - SKIN BURNING SENSATION [None]
  - THERAPEUTIC RESPONSE DECREASED [None]
  - TRISMUS [None]
